FAERS Safety Report 5975139-X (Version None)
Quarter: 2008Q4

REPORT INFORMATION
  Report Type: 
  Country: None (occurrence: None)
  Receive Date: 20081128
  Receipt Date: 20081117
  Transmission Date: 20090506
  Serious: Yes (Death, Life-Threatening)
  Sender: FDA-Public Use
  Company Number: 2004JP001191

PATIENT
  Age: 60 Year
  Sex: Female
  Weight: 52 kg

DRUGS (7)
  1. FUNGUARD(MICAFUNGIN) INJECTION [Suspect]
     Indication: SYSTEMIC MYCOSIS
     Dosage: 150.00 MG, UID/QD, IV NOS
     Route: 042
     Dates: start: 20040610, end: 20040610
  2. VESANOID CAPSULE [Concomitant]
  3. MAXIPIME [Concomitant]
  4. SUNRABIN (ENOCITABINE) INJECTION [Concomitant]
  5. DAUNOMYCIN (DAUNORUBICIN) INJECTION [Concomitant]
  6. GASTER TABLET [Concomitant]
  7. ALOSITOL TABLET [Concomitant]

REACTIONS (13)
  - ABDOMINAL PAIN [None]
  - ANAPHYLACTIC SHOCK [None]
  - APPLICATION SITE SWELLING [None]
  - BLOOD LACTATE DEHYDROGENASE INCREASED [None]
  - DISSEMINATED INTRAVASCULAR COAGULATION [None]
  - HAEMODIALYSIS [None]
  - HAEMOLYSIS [None]
  - INFECTION [None]
  - INJECTION SITE INDURATION [None]
  - MELAENA [None]
  - PNEUMONIA [None]
  - PULMONARY OEDEMA [None]
  - RENAL FAILURE [None]
